FAERS Safety Report 15918668 (Version 3)
Quarter: 2019Q3

REPORT INFORMATION
  Report Type: Spontaneous
  Country: US (occurrence: US)
  Receive Date: 20190205
  Receipt Date: 20190802
  Transmission Date: 20191004
  Serious: Yes (Death, Other)
  Sender: FDA-Public Use
  Company Number: US-ASTRAZENECA-2018SF34213

PATIENT
  Age: 749 Month
  Sex: Male

DRUGS (1)
  1. PRILOSEC [Suspect]
     Active Substance: OMEPRAZOLE MAGNESIUM
     Indication: GASTROOESOPHAGEAL REFLUX DISEASE
     Route: 048
     Dates: start: 200610

REACTIONS (6)
  - Acute kidney injury [Not Recovered/Not Resolved]
  - B-cell lymphoma [Fatal]
  - Urinary tract infection [Fatal]
  - Septic shock [Fatal]
  - Chronic kidney disease [Not Recovered/Not Resolved]
  - Ureteric obstruction [Fatal]

NARRATIVE: CASE EVENT DATE: 201305
